FAERS Safety Report 11687145 (Version 3)
Quarter: 2015Q4

REPORT INFORMATION
  Report Type: Spontaneous
  Country: AT (occurrence: AT)
  Receive Date: 20151030
  Receipt Date: 20151123
  Transmission Date: 20160304
  Serious: Yes (Life-Threatening, Disabling)
  Sender: FDA-Public Use
  Company Number: AT-JNJFOC-20151020205

PATIENT
  Age: 48 Year
  Sex: Male
  Weight: 100 kg

DRUGS (8)
  1. REMICADE [Suspect]
     Active Substance: INFLIXIMAB
     Indication: COLITIS ULCERATIVE
     Dosage: DOSE- 5 MG/KG, FREQUENCY/DOSING INTERVAL- 0-2-6 EVERY 8 WEEKS
     Route: 042
     Dates: start: 20150325, end: 20151001
  2. CONCOR [Concomitant]
     Active Substance: BISOPROLOL FUMARATE
     Route: 065
  3. CO-DIOVAN [Concomitant]
     Active Substance: HYDROCHLOROTHIAZIDE\VALSARTAN
     Dosage: DOSE 160 MG/12.5 MG
     Route: 065
  4. REMICADE [Suspect]
     Active Substance: INFLIXIMAB
     Indication: COLITIS ULCERATIVE
     Route: 042
     Dates: start: 20150319
  5. REMICADE [Suspect]
     Active Substance: INFLIXIMAB
     Indication: COLITIS ULCERATIVE
     Route: 042
     Dates: start: 201510
  6. DIOVAN [Concomitant]
     Active Substance: VALSARTAN
     Route: 065
  7. METAMIZOLE SODIUM [Concomitant]
     Active Substance: METAMIZOLE SODIUM
     Route: 065
  8. ZANIDIP [Concomitant]
     Active Substance: LERCANIDIPINE HYDROCHLORIDE
     Route: 065

REACTIONS (1)
  - Pancreatic carcinoma metastatic [Recovered/Resolved with Sequelae]

NARRATIVE: CASE EVENT DATE: 20151023
